FAERS Safety Report 9069696 (Version 4)
Quarter: 2013Q2

REPORT INFORMATION
  Report Type: Report from Study
  Country: JP (occurrence: JP)
  Receive Date: 20130215
  Receipt Date: 20130609
  Transmission Date: 20140414
  Serious: Yes (Other)
  Sender: FDA-Public Use
  Company Number: JP-OTSUKA-JP-2013-10405

PATIENT
  Age: 88 Year
  Sex: Male
  Weight: 55.9 kg

DRUGS (9)
  1. SAMSCA [Suspect]
     Indication: FLUID RETENTION
     Dosage: 7.5 MG MILLIGRAM(S), QAM
     Route: 048
     Dates: start: 20120809
  2. LASIX [Suspect]
     Indication: CARDIAC FAILURE
     Dosage: 20 MG MILLIGRAM(S), DAILY DOSE
     Route: 048
  3. ZYLORIC [Concomitant]
     Dosage: 100 MG MILLIGRAM(S), DAILY DOSE
     Route: 048
  4. URALYT [Concomitant]
     Dosage: 1 G GRAM(S), DAILY DOSE
     Route: 048
  5. SPELEAR [Concomitant]
     Dosage: 1200 MG MILLIGRAM(S), DAILY DOSE
     Route: 048
  6. BENZALIN [Concomitant]
     Dosage: 15 MG MILLIGRAM(S), DAILY DOSE
     Route: 048
  7. AMOBAN [Concomitant]
     Dosage: 7.5 MG MILLIGRAM(S), DAILY DOSE
     Route: 048
  8. CARNACULIN [Concomitant]
     Dosage: 150 IU, DAILY DOSE
     Route: 048
  9. ALDACTONE A [Concomitant]
     Indication: CARDIAC FAILURE
     Dosage: 25 MG MILLIGRAM(S), DAILY DOSE
     Route: 048
     Dates: start: 20120712

REACTIONS (2)
  - Blood urea increased [Not Recovered/Not Resolved]
  - Blood creatinine increased [Not Recovered/Not Resolved]
